FAERS Safety Report 7901421-2 (Version None)
Quarter: 2011Q4

REPORT INFORMATION
  Report Type: 
  Country: None (occurrence: None)
  Receive Date: 20111108
  Receipt Date: 20111101
  Transmission Date: 20120403
  Serious: Yes (Hospitalization)
  Sender: FDA-Public Use
  Company Number: US-SANOFI-AVENTIS-2011SA072115

PATIENT
  Age: 74 Year
  Sex: Male
  Weight: 100 kg

DRUGS (8)
  1. ELOXATIN [Suspect]
     Route: 041
     Dates: start: 20110913, end: 20110913
  2. ELOXATIN [Suspect]
     Route: 041
     Dates: start: 20110922, end: 20110922
  3. LEUCOVORIN CALCIUM [Suspect]
     Dates: start: 20110913, end: 20110913
  4. BEVACIZUMAB [Suspect]
     Dates: start: 20110913, end: 20110913
  5. FLUOROURACIL [Suspect]
     Dates: start: 20110913, end: 20110913
  6. LEUCOVORIN CALCIUM [Suspect]
     Dates: start: 20110922, end: 20110922
  7. FLUOROURACIL [Suspect]
     Dates: start: 20110922, end: 20110922
  8. BEVACIZUMAB [Suspect]
     Dates: start: 20110922, end: 20110922

REACTIONS (2)
  - WEIGHT DECREASED [None]
  - OESOPHAGEAL SPASM [None]
